FAERS Safety Report 17362974 (Version 3)
Quarter: 2021Q2

REPORT INFORMATION
  Report Type: Spontaneous
  Country: US (occurrence: US)
  Receive Date: 20200203
  Receipt Date: 20210614
  Transmission Date: 20210716
  Serious: Yes (Other)
  Sender: FDA-Public Use
  Company Number: US-GILEAD-2020-0448811

PATIENT
  Age: 62 Year
  Sex: Male
  Weight: 59 kg

DRUGS (45)
  1. DILAUDID [Concomitant]
     Active Substance: HYDROMORPHONE HYDROCHLORIDE
  2. MIRALAX [Concomitant]
     Active Substance: POLYETHYLENE GLYCOL 3350
  3. OMEPRAZOLE. [Concomitant]
     Active Substance: OMEPRAZOLE
  4. ONDANSETRON [Concomitant]
     Active Substance: ONDANSETRON
  5. OXYCODONE [Concomitant]
     Active Substance: OXYCODONE
  6. PROTONIX [OMEPRAZOLE] [Concomitant]
     Active Substance: OMEPRAZOLE
  7. SULFAMETHOXAZOLE [Concomitant]
     Active Substance: SULFAMETHOXAZOLE
  8. DARUNAVIR ACCORD [Concomitant]
  9. IPRATROPIUM BR [Concomitant]
  10. ALBUTEROL HFA [Concomitant]
     Active Substance: ALBUTEROL SULFATE
  11. RITONAVIR. [Concomitant]
     Active Substance: RITONAVIR
  12. SENNA ACUTIFOLIA [Concomitant]
  13. SUCRALFATE. [Concomitant]
     Active Substance: SUCRALFATE
  14. LAXATIVE STOOL SOFTENER WITH SENNA [Concomitant]
  15. MIRTAZAPINE. [Concomitant]
     Active Substance: MIRTAZAPINE
  16. DOLUTEGRAVIR [Concomitant]
     Active Substance: DOLUTEGRAVIR
  17. TRIMETHOPRIM. [Concomitant]
     Active Substance: TRIMETHOPRIM
  18. DESMOPRESSIN [Concomitant]
     Active Substance: DESMOPRESSIN
  19. EPOETIN ALFA BS [Concomitant]
     Active Substance: ERYTHROPOIETIN
  20. PRILOSEC [Concomitant]
     Active Substance: OMEPRAZOLE MAGNESIUM
  21. PROCRIT [Concomitant]
     Active Substance: ERYTHROPOIETIN
  22. TRUVADA [Suspect]
     Active Substance: EMTRICITABINE\TENOFOVIR DISOPROXIL FUMARATE
     Indication: HIV INFECTION
     Dosage: UNK
     Route: 048
     Dates: start: 2004, end: 20170213
  23. TRUVADA [Suspect]
     Active Substance: EMTRICITABINE\TENOFOVIR DISOPROXIL FUMARATE
     Dosage: UNK
     Route: 048
     Dates: start: 20120510, end: 20170213
  24. ALBUTEROL SULFATE. [Concomitant]
     Active Substance: ALBUTEROL SULFATE
  25. PANTOPRAZOLE [Concomitant]
     Active Substance: PANTOPRAZOLE
  26. PREDNISONE. [Concomitant]
     Active Substance: PREDNISONE
  27. FOLIC ACID. [Concomitant]
     Active Substance: FOLIC ACID
  28. THIAMINE. [Concomitant]
     Active Substance: THIAMINE
  29. AMOXICILLIN. [Concomitant]
     Active Substance: AMOXICILLIN
  30. NORVIR [Concomitant]
     Active Substance: RITONAVIR
  31. AMMONIUM LACTATE. [Concomitant]
     Active Substance: AMMONIUM LACTATE
  32. CLARITIN ALLERGIC [Concomitant]
     Active Substance: OXYMETAZOLINE HYDROCHLORIDE
  33. HECTOROL [Concomitant]
     Active Substance: DOXERCALCIFEROL
  34. LEVOTHYROXINE. [Concomitant]
     Active Substance: LEVOTHYROXINE
  35. VITAMIN B1 AND B6 [Concomitant]
     Active Substance: PYRIDOXINE HYDROCHLORIDE\THIAMINE HYDROCHLORIDE
  36. ACETAMINOPHEN. [Concomitant]
     Active Substance: ACETAMINOPHEN
  37. CARAFATE [Concomitant]
     Active Substance: SUCRALFATE
  38. DUONEB [Concomitant]
     Active Substance: ALBUTEROL SULFATE\IPRATROPIUM BROMIDE
  39. HYDROCORTISONE ACETATE. [Concomitant]
     Active Substance: HYDROCORTISONE ACETATE
  40. MIDODRINE [Concomitant]
     Active Substance: MIDODRINE
  41. NAPROXEN. [Concomitant]
     Active Substance: NAPROXEN
  42. FINASTERIDE. [Concomitant]
     Active Substance: FINASTERIDE
  43. LIQUACEL [Concomitant]
  44. COMBIVENT [Concomitant]
     Active Substance: ALBUTEROL SULFATE\IPRATROPIUM BROMIDE
  45. ERYTHROPOIETIN [Concomitant]
     Active Substance: ERYTHROPOIETIN

REACTIONS (7)
  - End stage renal disease [Not Recovered/Not Resolved]
  - Emotional distress [Not Recovered/Not Resolved]
  - Anxiety [Not Recovered/Not Resolved]
  - Economic problem [Not Recovered/Not Resolved]
  - Depression [Not Recovered/Not Resolved]
  - Anhedonia [Not Recovered/Not Resolved]
  - Pain [Not Recovered/Not Resolved]

NARRATIVE: CASE EVENT DATE: 20161219
